FAERS Safety Report 10503877 (Version 1)
Quarter: 2014Q4

REPORT INFORMATION
  Report Type: Not Available
  Country: US (occurrence: US)
  Receive Date: 20141008
  Receipt Date: 20141008
  Transmission Date: 20150528
  Serious: No
  Sender: FDA-Public Use
  Company Number: US-LUPIN PHARMACEUTICALS INC.-2014-01612

PATIENT

DRUGS (2)
  1. CEFADROXIL FOR ORAL SUSPENSION USP 500MG/5ML [Suspect]
     Active Substance: CEFADROXIL
     Dates: start: 201409
  2. CEFADROXIL FOR ORAL SUSPENSION USP 500MG/5ML [Suspect]
     Active Substance: CEFADROXIL
     Indication: PRODUCT USED FOR UNKNOWN INDICATION
     Dates: start: 201407

REACTIONS (2)
  - Drug administration error [Unknown]
  - Drug ineffective [Unknown]
